FAERS Safety Report 5588656-1 (Version None)
Quarter: 2008Q1

REPORT INFORMATION
  Report Type: 
  Country: None (occurrence: None)
  Receive Date: 20080111
  Receipt Date: 20071231
  Transmission Date: 20080703
  Serious: Yes (Other)
  Sender: FDA-Public Use
  Company Number: US-PFIZER INC-2008000407

PATIENT
  Sex: Male

DRUGS (1)
  1. NORVASC [Suspect]
     Indication: BLOOD PRESSURE

REACTIONS (7)
  - BLINDNESS UNILATERAL [None]
  - DIZZINESS [None]
  - FATIGUE [None]
  - PAIN [None]
  - PARAESTHESIA [None]
  - PRURITUS [None]
  - THROMBOSIS [None]
